FAERS Safety Report 8848069 (Version 2)
Quarter: 2015Q3

REPORT INFORMATION
  Report Type: Report from Study
  Country: US (occurrence: US)
  Receive Date: 20121018
  Receipt Date: 20150824
  Transmission Date: 20151125
  Serious: Yes (Other)
  Sender: FDA-Public Use
  Company Number: US-ROCHE-1139681

PATIENT
  Age: 13 Year
  Sex: Female
  Weight: 48.1 kg

DRUGS (10)
  1. PROTROPIN [Suspect]
     Active Substance: SOMATREM
     Indication: BONE DEVELOPMENT ABNORMAL
     Route: 058
  2. PROTROPIN [Suspect]
     Active Substance: SOMATREM
     Route: 058
  3. PROTROPIN [Suspect]
     Active Substance: SOMATREM
     Route: 058
  4. PROTROPIN [Suspect]
     Active Substance: SOMATREM
     Route: 058
  5. NUTROPIN AQ [Suspect]
     Active Substance: SOMATROPIN
     Indication: BONE DEVELOPMENT ABNORMAL
     Route: 058
     Dates: start: 19980611
  6. PROTROPIN [Suspect]
     Active Substance: SOMATREM
     Route: 058
  7. PROTROPIN [Suspect]
     Active Substance: SOMATREM
     Route: 058
  8. PROTROPIN [Suspect]
     Active Substance: SOMATREM
     Dosage: NIGHTLY
     Route: 058
  9. PROTROPIN [Suspect]
     Active Substance: SOMATREM
     Dosage: NIGHTLY
     Route: 058
  10. PROTROPIN [Suspect]
     Active Substance: SOMATREM
     Route: 058

REACTIONS (15)
  - Pharyngitis streptococcal [Unknown]
  - Sinusitis [Unknown]
  - Headache [Unknown]
  - Diarrhoea [Unknown]
  - Drug dose omission [Unknown]
  - Hirsutism [Unknown]
  - Muscle spasms [Unknown]
  - Vomiting [Unknown]
  - Pyrexia [Unknown]
  - Cartilage injury [Unknown]
  - Arthralgia [Unknown]
  - Gastroenteritis viral [Unknown]
  - Injection site pain [Unknown]
  - Sinus headache [Unknown]
  - Weight decreased [Unknown]

NARRATIVE: CASE EVENT DATE: 20010315
